FAERS Safety Report 21257373 (Version 2)
Quarter: 2022Q3

REPORT INFORMATION
  Report Type: Spontaneous
  Country: BR (occurrence: BR)
  Receive Date: 20220826
  Receipt Date: 20220913
  Transmission Date: 20221026
  Serious: Yes (Hospitalization)
  Sender: FDA-Public Use
  Company Number: BR-SA-SAC20220824000911

PATIENT
  Sex: Female
  Weight: 3.71 kg

DRUGS (1)
  1. ENOXAPARIN SODIUM [Suspect]
     Active Substance: ENOXAPARIN SODIUM
     Dosage: UNK
     Route: 064

REACTIONS (3)
  - Fatigue [Unknown]
  - Weight abnormal [Unknown]
  - Maternal exposure during breast feeding [Unknown]
